FAERS Safety Report 5637770-0 (Version None)
Quarter: 2008Q1

REPORT INFORMATION
  Report Type: 
  Country: None (occurrence: None)
  Receive Date: 20080219
  Receipt Date: 20080212
  Transmission Date: 20080703
  Serious: Yes (Other)
  Sender: FDA-Public Use
  Company Number: OPER20080023

PATIENT
  Age: 45 Year
  Sex: Male

DRUGS (6)
  1. OPANA ER [Suspect]
     Dosage: 40 MG, INTRA-NASAL
     Route: 045
  2. OXYCODONE HCL EXTENDED-RELEASE [Suspect]
  3. NORCO [Suspect]
  4. OXYCONTIN [Suspect]
  5. MARIJUANA [Suspect]
  6. ALCOHOL [Suspect]

REACTIONS (3)
  - DRUG DEPENDENCE [None]
  - INCORRECT ROUTE OF DRUG ADMINISTRATION [None]
  - INTENTIONAL DRUG MISUSE [None]
